FAERS Safety Report 12959479 (Version 1)
Quarter: 2016Q4

REPORT INFORMATION
  Report Type: Spontaneous
  Country: US (occurrence: US)
  Receive Date: 20161118
  Receipt Date: 20161118
  Transmission Date: 20170207
  Serious: Yes (Hospitalization, Disabling)
  Sender: FDA-Public Use
  Company Number: None

PATIENT
  Age: 42 Year
  Sex: Female
  Weight: 54 kg

DRUGS (8)
  1. CYCLOBENZAPRINE [Concomitant]
     Active Substance: CYCLOBENZAPRINE
  2. TRINTELLIX [Concomitant]
     Active Substance: VORTIOXETINE HYDROBROMIDE
  3. ROBAXIN [Concomitant]
     Active Substance: METHOCARBAMOL
  4. PLAQUENIL [Concomitant]
     Active Substance: HYDROXYCHLOROQUINE SULFATE
  5. HYDROCODONE [Concomitant]
     Active Substance: HYDROCODONE
  6. MYCOPHENOLATE MOFETIL. [Suspect]
     Active Substance: MYCOPHENOLATE MOFETIL
     Indication: SYSTEMIC LUPUS ERYTHEMATOSUS
     Dosage: ?          QUANTITY:4 TABLET(S);?
     Route: 048
  7. DAILY MULTIVITAMIN [Concomitant]
     Active Substance: VITAMINS
  8. PROBIOTICS [Concomitant]
     Active Substance: PROBIOTICS NOS

REACTIONS (10)
  - Nausea [None]
  - Vomiting [None]
  - Chest pain [None]
  - Deafness unilateral [None]
  - Vertigo [None]
  - Palpitations [None]
  - Dizziness [None]
  - Ototoxicity [None]
  - Deafness neurosensory [None]
  - Impaired driving ability [None]

NARRATIVE: CASE EVENT DATE: 20160618
